FAERS Safety Report 8871463 (Version 1)
Quarter: 2012Q4

REPORT INFORMATION
  Report Type: Spontaneous
  Country: US (occurrence: None)
  Receive Date: 20121026
  Receipt Date: 20121026
  Transmission Date: 20130627
  Serious: Yes (Other)
  Sender: FDA-Public Use
  Company Number: None

PATIENT
  Age: 6 Year
  Sex: Male
  Weight: 22.68 kg

DRUGS (2)
  1. ONFI [Suspect]
     Route: 048
     Dates: start: 20120401, end: 20120901
  2. LAMOTRIGINE [Concomitant]

REACTIONS (5)
  - Irritability [None]
  - Psychomotor hyperactivity [None]
  - Autism [None]
  - Condition aggravated [None]
  - Social avoidant behaviour [None]
